FAERS Safety Report 18312337 (Version 1)
Quarter: 2020Q3

REPORT INFORMATION
  Report Type: Spontaneous
  Country: CA (occurrence: CA)
  Receive Date: 20200925
  Receipt Date: 20200925
  Transmission Date: 20201103
  Serious: Yes (Hospitalization)
  Sender: FDA-Public Use
  Company Number: CA-ACCORD-202533

PATIENT
  Age: 76 Year
  Sex: Female

DRUGS (14)
  1. IRBESARTAN. [Concomitant]
     Active Substance: IRBESARTAN
  2. NITRO [Concomitant]
     Active Substance: NITROGLYCERIN
  3. VENLAFAXINE/VENLAFAXINE HYDROCHLORIDE [Concomitant]
     Active Substance: VENLAFAXINE HYDROCHLORIDE
  4. METHOTREXATE. [Concomitant]
     Active Substance: METHOTREXATE
  5. ROSUVASTATIN/ROSUVASTATIN CALCIUM [Concomitant]
     Active Substance: ROSUVASTATIN CALCIUM
  6. NITROGLYCERIN. [Concomitant]
     Active Substance: NITROGLYCERIN
  7. OMNARIS [Concomitant]
     Active Substance: CICLESONIDE
  8. BISOPROLOL [Concomitant]
     Active Substance: BISOPROLOL
  9. METFORMIN [Concomitant]
     Active Substance: METFORMIN HYDROCHLORIDE
  10. METHOTREXATE. [Suspect]
     Active Substance: METHOTREXATE
     Indication: PRODUCT USED FOR UNKNOWN INDICATION
  11. SYNTHROID [Concomitant]
     Active Substance: LEVOTHYROXINE SODIUM
  12. SALBUTAMOL [Concomitant]
     Active Substance: ALBUTEROL
  13. PREDNISONE. [Concomitant]
     Active Substance: PREDNISONE
  14. CETIRIZINE [Concomitant]
     Active Substance: CETIRIZINE HYDROCHLORIDE

REACTIONS (8)
  - Pancytopenia [Recovering/Resolving]
  - Toxicity to various agents [Unknown]
  - Retching [Recovering/Resolving]
  - Nausea [Recovering/Resolving]
  - Acute kidney injury [Recovering/Resolving]
  - Fluid intake reduced [Recovering/Resolving]
  - Decreased appetite [Recovering/Resolving]
  - Stomatitis [Recovering/Resolving]
